FAERS Safety Report 5189494-4 (Version None)
Quarter: 2006Q4

REPORT INFORMATION
  Report Type: 
  Country: None (occurrence: None)
  Receive Date: 20061221
  Receipt Date: 20050630
  Transmission Date: 20070319
  Serious: No
  Sender: FDA-Public Use
  Company Number: US-AMGEN-US140869

PATIENT
  Sex: Female

DRUGS (2)
  1. ENBREL [Suspect]
     Indication: RHEUMATOID ARTHRITIS
     Route: 065
     Dates: start: 20050501
  2. BENADRYL [Concomitant]
     Route: 048

REACTIONS (2)
  - INJECTION SITE BRUISING [None]
  - INJECTION SITE REACTION [None]
